FAERS Safety Report 11593553 (Version 1)
Quarter: 2015Q4

REPORT INFORMATION
  Report Type: Spontaneous
  Country: US (occurrence: None)
  Receive Date: 20151002
  Receipt Date: 20151002
  Transmission Date: 20160304
  Serious: Yes (Hospitalization)
  Sender: FDA-Public Use
  Company Number: None

PATIENT
  Age: 79 Year
  Sex: Male
  Weight: 81.65 kg

DRUGS (4)
  1. FLUTAMIDE. [Suspect]
     Active Substance: FLUTAMIDE
     Indication: PROSTATE CANCER
     Dosage: 1 PILL
     Route: 048
     Dates: start: 20150905, end: 20150923
  2. SIMVASTATIN 20 MG [Concomitant]
     Active Substance: SIMVASTATIN
  3. OMEPRAZOLE 20 MG [Concomitant]
     Active Substance: OMEPRAZOLE
  4. NIACIN 500 MG [Concomitant]

REACTIONS (4)
  - Rhabdomyolysis [None]
  - Clostridium difficile colitis [None]
  - Hypotension [None]
  - Myositis [None]

NARRATIVE: CASE EVENT DATE: 20150925
